FAERS Safety Report 6744428-3 (Version None)
Quarter: 2010Q2

REPORT INFORMATION
  Report Type: 
  Country: None (occurrence: None)
  Receive Date: 20100527
  Receipt Date: 20100514
  Transmission Date: 20101027
  Serious: Yes (Other)
  Sender: FDA-Public Use
  Company Number: US-PFIZER INC-2010061273

PATIENT
  Sex: Male
  Weight: 77.1 kg

DRUGS (8)
  1. NEURONTIN [Suspect]
     Indication: PAIN IN EXTREMITY
     Dosage: 1100 MG, 3X/DAY
     Route: 048
     Dates: end: 20100101
  2. LYRICA [Suspect]
     Indication: PAIN IN EXTREMITY
     Dosage: UNK
  3. GABAPENTIN [Suspect]
     Indication: PAIN IN EXTREMITY
     Dosage: UNK
  4. HYDROCODONE [Suspect]
     Indication: PAIN IN EXTREMITY
     Dosage: 10/650 MG
  5. LISINOPRIL [Concomitant]
     Indication: HYPERTENSION
     Dosage: 20 MG, 1X/DAY
     Route: 048
  6. SIMVASTATIN [Concomitant]
     Indication: BLOOD CHOLESTEROL INCREASED
     Dosage: 20 MG, 1X/DAY
     Route: 048
  7. SKELAXIN [Concomitant]
     Indication: MUSCLE RELAXANT THERAPY
     Dosage: 800 MG, UNK
  8. ACETYLSALICYLIC ACID [Concomitant]
     Dosage: UNK

REACTIONS (6)
  - ABDOMINAL DISCOMFORT [None]
  - BALANCE DISORDER [None]
  - HAEMATOCHEZIA [None]
  - SOMNOLENCE [None]
  - STOMATITIS [None]
  - VISUAL IMPAIRMENT [None]
